FAERS Safety Report 5810153-6 (Version None)
Quarter: 2008Q3

REPORT INFORMATION
  Report Type: 
  Country: None (occurrence: None)
  Receive Date: 20080715
  Receipt Date: 20070814
  Transmission Date: 20090109
  Serious: No
  Sender: FDA-Public Use
  Company Number: A0670179A

PATIENT
  Age: 42 Year
  Sex: Female

DRUGS (4)
  1. IMITREX [Suspect]
     Indication: MIGRAINE
     Dosage: 100MG MONTHLY
     Route: 048
     Dates: start: 19990101
  2. FIORICET [Concomitant]
  3. AMPICILLIN [Concomitant]
  4. NORTRIPTYLINE HCL [Concomitant]

REACTIONS (3)
  - OROPHARYNGEAL PAIN [None]
  - PAIN [None]
  - THROAT TIGHTNESS [None]
